FAERS Safety Report 8962951 (Version 2)
Quarter: 2013Q3

REPORT INFORMATION
  Report Type: Spontaneous
  Country: GB (occurrence: GB)
  Receive Date: 20121205
  Receipt Date: 20130927
  Transmission Date: 20140515
  Serious: Yes (Life-Threatening)
  Sender: FDA-Public Use
  Company Number: GB-BANPHARM-20120382

PATIENT
  Age: 77 Year
  Sex: Female

DRUGS (6)
  1. IBUPROFEN UNKNOWN PRODUCT [Suspect]
     Indication: NECK PAIN
     Dosage: 400 MG, TID, PRN,
     Route: 048
     Dates: start: 1990
  2. BECLOMETHASONE [Concomitant]
     Indication: ASTHMA
     Dosage: 4?G, BID,
     Route: 055
  3. BENDROFLUMETHIAZIDE [Concomitant]
     Indication: BLOOD PRESSURE INCREASED
     Dosage: 3 MG, QD,
     Route: 048
  4. DOXAZOSIN [Concomitant]
     Indication: BLOOD PRESSURE INCREASED
     Dosage: 8 MG, QD,
     Route: 048
  5. LOSARTAN [Concomitant]
     Indication: BLOOD PRESSURE INCREASED
     Dosage: 50 MG, BID,
     Route: 048
  6. SALBUTAMOL [Concomitant]
     Indication: ASTHMA
     Dosage: 1 DF,
     Route: 055

REACTIONS (1)
  - Peptic ulcer perforation [Recovering/Resolving]
